FAERS Safety Report 7341138-9 (Version None)
Quarter: 2011Q1

REPORT INFORMATION
  Report Type: 
  Country: None (occurrence: None)
  Receive Date: 20110309
  Receipt Date: 20110307
  Transmission Date: 20110831
  Serious: Yes (Congenital Anomaly)
  Sender: FDA-Public Use
  Company Number: A0917014A

PATIENT

DRUGS (3)
  1. COMBIVIR [Suspect]
     Indication: ANTIVIRAL TREATMENT
     Dosage: 2TAB PER DAY
     Route: 064
     Dates: start: 20091104
  2. KALETRA [Suspect]
     Indication: ANTIVIRAL TREATMENT
     Dosage: 4TAB PER DAY
     Route: 064
     Dates: start: 20091104, end: 20100309
  3. KALETRA [Suspect]
     Dosage: 6TAB PER DAY
     Route: 064
     Dates: start: 20100309

REACTIONS (3)
  - POLYDACTYLY [None]
  - SYNDACTYLY [None]
  - DRUG EXPOSURE DURING PREGNANCY [None]
